FAERS Safety Report 9962491 (Version 1)
Quarter: 2014Q1

REPORT INFORMATION
  Report Type: Report from Study
  Country: US (occurrence: US)
  Receive Date: 20140305
  Receipt Date: 20140305
  Transmission Date: 20141002
  Serious: No
  Sender: FDA-Public Use
  Company Number: US-ABBVIE-13P-163-1116852-00

PATIENT
  Age: 69 Year
  Sex: Female
  Weight: 54.48 kg

DRUGS (8)
  1. HUMIRA [Suspect]
     Indication: RHEUMATOID ARTHRITIS
     Dates: start: 201206
  2. PAROXETINE [Concomitant]
     Indication: NERVOUSNESS
  3. ASPIRIN [Concomitant]
     Indication: CORONARY ARTERY BYPASS
  4. CARVEDILOL [Concomitant]
     Indication: CARDIAC DISORDER
  5. CRESTOR [Concomitant]
     Indication: BLOOD CHOLESTEROL INCREASED
  6. FLEXERIL [Concomitant]
     Indication: MUSCLE SPASMS
  7. LEVOXYL [Concomitant]
     Indication: HORMONE REPLACEMENT THERAPY
  8. PROCARDIS [Concomitant]
     Indication: CARDIAC DISORDER

REACTIONS (12)
  - Muscle twitching [Not Recovered/Not Resolved]
  - Paraesthesia [Not Recovered/Not Resolved]
  - Nervousness [Not Recovered/Not Resolved]
  - Pain in extremity [Not Recovered/Not Resolved]
  - Drug ineffective [Not Recovered/Not Resolved]
  - Gait disturbance [Not Recovered/Not Resolved]
  - Vision blurred [Not Recovered/Not Resolved]
  - Memory impairment [Not Recovered/Not Resolved]
  - Depressed mood [Not Recovered/Not Resolved]
  - Insomnia [Not Recovered/Not Resolved]
  - Formication [Not Recovered/Not Resolved]
  - Stress [Unknown]
